FAERS Safety Report 7015270-3 (Version None)
Quarter: 2010Q3

REPORT INFORMATION
  Report Type: 
  Country: None (occurrence: None)
  Receive Date: 20100927
  Receipt Date: 20100922
  Transmission Date: 20110219
  Serious: Yes (Hospitalization)
  Sender: FDA-Public Use
  Company Number: DE-AMGEN-QUU440589

PATIENT
  Age: 74 Year
  Sex: Female

DRUGS (5)
  1. ENBREL [Suspect]
     Indication: PSORIATIC ARTHROPATHY
     Route: 058
     Dates: start: 20100605, end: 20100801
  2. ENBREL [Suspect]
     Route: 058
     Dates: start: 20100801
  3. ENBREL [Suspect]
     Route: 058
     Dates: start: 20100101
  4. PREDNISOLONE [Concomitant]
     Dosage: 10MG, FREQUENCY UNKNOWN
  5. METHOTREXATE [Concomitant]
     Dosage: 20MG, FREQUENCY UNKNOWN

REACTIONS (4)
  - CONDITION AGGRAVATED [None]
  - INCORRECT DOSE ADMINISTERED [None]
  - KNEE ARTHROPLASTY [None]
  - PSORIATIC ARTHROPATHY [None]
